FAERS Safety Report 5401797-4 (Version None)
Quarter: 2007Q3

REPORT INFORMATION
  Report Type: 
  Country: None (occurrence: None)
  Receive Date: 20070731
  Receipt Date: 20070719
  Transmission Date: 20080115
  Serious: Yes (Other)
  Sender: FDA-Public Use
  Company Number: GB-PFIZER INC-2007060753

PATIENT
  Age: 82 Year
  Sex: Female

DRUGS (3)
  1. LATANOPROST [Suspect]
     Indication: GLAUCOMA
  2. CYCLOPENTOLATE HCL [Interacting]
     Indication: ULCERATIVE KERATITIS
     Route: 061
  3. OFLOXACIN [Interacting]
     Indication: ULCERATIVE KERATITIS
     Route: 061

REACTIONS (2)
  - CORNEAL DEPOSITS [None]
  - DRUG INTERACTION [None]
